FAERS Safety Report 13176508 (Version 2)
Quarter: 2017Q1

REPORT INFORMATION
  Report Type: Spontaneous
  Country: DE (occurrence: DE)
  Receive Date: 20170201
  Receipt Date: 20170301
  Transmission Date: 20170428
  Serious: Yes (Other)
  Sender: FDA-Public Use
  Company Number: DE-GILEAD-2017-0255858

PATIENT
  Age: 84 Year
  Sex: Male

DRUGS (9)
  1. METOPROLOL. [Suspect]
     Active Substance: METOPROLOL
     Indication: PRODUCT USED FOR UNKNOWN INDICATION
     Dosage: 23.75 MG, QD
     Route: 065
     Dates: start: 2004, end: 201612
  2. RANEXA [Suspect]
     Active Substance: RANOLAZINE
     Indication: PRODUCT USED FOR UNKNOWN INDICATION
     Route: 048
     Dates: start: 20140614, end: 20161228
  3. METOPROLOL. [Suspect]
     Active Substance: METOPROLOL
     Dosage: 23.75 MG, QD
     Route: 065
     Dates: start: 201702
  4. RANEXA [Suspect]
     Active Substance: RANOLAZINE
     Dosage: 375 MG, BID
     Route: 048
     Dates: start: 20170215
  5. EPLERENONE. [Suspect]
     Active Substance: EPLERENONE
     Indication: PRODUCT USED FOR UNKNOWN INDICATION
     Route: 065
     Dates: start: 2004
  6. TORASEMIDE [Suspect]
     Active Substance: TORSEMIDE
     Indication: PRODUCT USED FOR UNKNOWN INDICATION
     Route: 065
     Dates: start: 2004
  7. PHENPROCOUMON [Concomitant]
     Active Substance: PHENPROCOUMON
     Dates: start: 2004
  8. CANDESARTAN CILEXETIL. [Suspect]
     Active Substance: CANDESARTAN CILEXETIL
     Indication: PRODUCT USED FOR UNKNOWN INDICATION
     Dosage: 32 MG, QD
     Route: 065
     Dates: start: 2004, end: 201612
  9. CANDESARTAN CILEXETIL. [Suspect]
     Active Substance: CANDESARTAN CILEXETIL
     Dosage: 32 MG, QD
     Route: 065
     Dates: start: 201702

REACTIONS (12)
  - Asthenia [Not Recovered/Not Resolved]
  - Respiratory disorder [Not Recovered/Not Resolved]
  - Balance disorder [Recovering/Resolving]
  - Coordination abnormal [Not Recovered/Not Resolved]
  - Amnesia [Not Recovered/Not Resolved]
  - Cough [Not Recovered/Not Resolved]
  - Dizziness [Not Recovered/Not Resolved]
  - Tinnitus [Recovering/Resolving]
  - Dry mouth [Not Recovered/Not Resolved]
  - Hypotension [Recovered/Resolved]
  - Vertigo [Not Recovered/Not Resolved]
  - Abasia [Not Recovered/Not Resolved]
